FAERS Safety Report 8191324-3 (Version None)
Quarter: 2012Q1

REPORT INFORMATION
  Report Type: 
  Country: None (occurrence: None)
  Receive Date: 20120307
  Receipt Date: 20120301
  Transmission Date: 20120608
  Serious: Yes (Other)
  Sender: FDA-Public Use
  Company Number: US-PFIZER INC-2012018203

PATIENT
  Sex: Female

DRUGS (1)
  1. LYRICA [Suspect]
     Indication: PROGRESSIVE MULTIPLE SCLEROSIS
     Dosage: 75 MG, 2 AM, 1 AFTERNOON, 1 PM
     Route: 048

REACTIONS (4)
  - PARAESTHESIA [None]
  - MOVEMENT DISORDER [None]
  - DRUG EFFECT DECREASED [None]
  - CONVULSION [None]
